FAERS Safety Report 7435091-7 (Version None)
Quarter: 2011Q2

REPORT INFORMATION
  Report Type: 
  Country: None (occurrence: None)
  Receive Date: 20110425
  Receipt Date: 20110413
  Transmission Date: 20111010
  Serious: Yes (Other)
  Sender: FDA-Public Use
  Company Number: PHHY2011BR11291

PATIENT
  Age: 59 Year
  Sex: Male

DRUGS (1)
  1. VOLTAREN OPHTA [Suspect]
     Dosage: 5 ML, UNK

REACTIONS (2)
  - HYPERTENSION [None]
  - DIABETES MELLITUS [None]
